FAERS Safety Report 8511866-8 (Version None)
Quarter: 2012Q3

REPORT INFORMATION
  Report Type: 
  Country: None (occurrence: None)
  Receive Date: 20120716
  Receipt Date: 20120711
  Transmission Date: 20120928
  Serious: Yes (Other)
  Sender: FDA-Public Use
  Company Number: PHHY2012BR060556

PATIENT
  Sex: Male

DRUGS (1)
  1. AMLODOPINE BESYLATE AND VALSARTAN [Suspect]
     Dosage: 320/5MG, UNK

REACTIONS (3)
  - MEMORY IMPAIRMENT [None]
  - BRONCHITIS [None]
  - ASTHMA [None]
